FAERS Safety Report 7672703-7 (Version None)
Quarter: 2011Q3

REPORT INFORMATION
  Report Type: 
  Country: None (occurrence: None)
  Receive Date: 20110809
  Receipt Date: 20110802
  Transmission Date: 20111222
  Serious: Yes (Hospitalization, Other)
  Sender: FDA-Public Use
  Company Number: PHHY2011CH69670

PATIENT
  Age: 82 Year
  Sex: Female

DRUGS (6)
  1. CLOPIDOGREL [Concomitant]
  2. GABAPENTIN [Concomitant]
  3. OLMESARTAN MEDOXOMIL [Concomitant]
  4. SITAGLIPTIN [Concomitant]
     Dosage: 500 MG, QD
  5. METFORMIN HCL [Suspect]
     Dosage: 500 MG/DAY
     Route: 048
  6. METOPROLOL TARTRATE [Concomitant]

REACTIONS (6)
  - FAECAL INCONTINENCE [None]
  - GLYCOSYLATED HAEMOGLOBIN INCREASED [None]
  - HYPOALBUMINAEMIA [None]
  - BLOOD GLUCOSE INCREASED [None]
  - VITAMIN B12 DEFICIENCY [None]
  - MINI MENTAL STATUS EXAMINATION ABNORMAL [None]
